FAERS Safety Report 5916178-4 (Version None)
Quarter: 2008Q4

REPORT INFORMATION
  Report Type: 
  Country: None (occurrence: None)
  Receive Date: 20081013
  Receipt Date: 20081002
  Transmission Date: 20090506
  Serious: Yes (Other)
  Sender: FDA-Public Use
  Company Number: US-JNJFOC-20081000867

PATIENT
  Sex: Male
  Weight: 112.86 kg

DRUGS (4)
  1. REMICADE [Suspect]
     Route: 042
  2. REMICADE [Suspect]
     Indication: ANKYLOSING SPONDYLITIS
     Route: 042
  3. ETODOLAC [Concomitant]
  4. DOXYCYCLINE [Concomitant]

REACTIONS (4)
  - CHILLS [None]
  - INFUSION RELATED REACTION [None]
  - PARAESTHESIA [None]
  - THROAT TIGHTNESS [None]
